FAERS Safety Report 26149384 (Version 1)
Quarter: 2025Q4

REPORT INFORMATION
  Report Type: Spontaneous
  Country: BR (occurrence: BR)
  Receive Date: 20251212
  Receipt Date: 20251212
  Transmission Date: 20260118
  Serious: Yes (Other)
  Sender: SANOFI AVENTIS
  Company Number: BR-SANOFI-02741047

PATIENT
  Age: 69 Year
  Sex: Male

DRUGS (1)
  1. ENOXAPARIN SODIUM [Suspect]
     Active Substance: ENOXAPARIN SODIUM
     Indication: Anticoagulant therapy
     Dosage: 20MG  Q12H AND DRUG TREATMENT DURATION:02/10/2025
     Dates: start: 20251001, end: 20251002

REACTIONS (2)
  - Renal injury [Unknown]
  - Retroperitoneal haemorrhage [Unknown]
